FAERS Safety Report 5228699-0 (Version None)
Quarter: 2007Q1

REPORT INFORMATION
  Report Type: 
  Country: None (occurrence: None)
  Receive Date: 20070205
  Receipt Date: 20070122
  Transmission Date: 20070707
  Serious: Yes (Hospitalization, Other)
  Sender: FDA-Public Use
  Company Number: US-PURDUE-USA_2006_0025909

PATIENT
  Age: 49 Year
  Sex: Female

DRUGS (10)
  1. OXYCONTIN [Suspect]
     Indication: BACK PAIN
     Dosage: 20 MG, BID PRN
     Route: 048
     Dates: start: 20030101, end: 20050101
  2. OXYCONTIN [Suspect]
     Dosage: 40 MG, AM
     Dates: start: 20050101, end: 20050901
  3. OXYCONTIN [Suspect]
     Dosage: 60 MG, PM
     Dates: start: 20050101, end: 20050901
  4. OXYCONTIN [Suspect]
     Dosage: 20 MG, BID
     Dates: start: 20050901, end: 20061001
  5. OXYCONTIN [Suspect]
     Dosage: 30 MG, BID
     Dates: start: 20061001, end: 20061101
  6. OXYCONTIN [Suspect]
     Dosage: 40 MG, BID
     Dates: start: 20061101
  7. DILAUDID [Concomitant]
     Indication: ABDOMINAL PAIN
     Dosage: 4 MG, Q6H
     Dates: start: 20060901, end: 20061001
  8. DILAUDID [Concomitant]
     Dosage: 10 MG, Q6H PRN
     Dates: start: 20061001
  9. LORTAB [Concomitant]
     Indication: ABDOMINAL PAIN
     Dosage: 7.5 MG, PRN
     Dates: start: 20050101, end: 20061101
  10. LORTAB [Concomitant]
     Dosage: 15 MG, Q4H
     Dates: start: 20061101

REACTIONS (4)
  - ABDOMINAL PAIN [None]
  - GALLBLADDER PAIN [None]
  - NERVE INJURY [None]
  - PHARMACEUTICAL PRODUCT COMPLAINT [None]
